FAERS Safety Report 4748232-7 (Version None)
Quarter: 2005Q3

REPORT INFORMATION
  Report Type: 
  Country: None (occurrence: None)
  Receive Date: 20050818
  Receipt Date: 20030312
  Transmission Date: 20060218
  Serious: Yes (Hospitalization)
  Sender: FDA-Public Use
  Company Number: JP-NOVOPROD-225716

PATIENT
  Age: 71 Year
  Sex: Male
  Weight: 50 kg

DRUGS (6)
  1. NOVOLIN R PENFILL CHU [Suspect]
     Indication: DIABETES MELLITUS INSULIN-DEPENDENT
     Dosage: 17 IU, QD
     Route: 058
     Dates: start: 20000515
  2. PENFILL N CHU [Suspect]
     Indication: DIABETES MELLITUS INSULIN-DEPENDENT
     Dosage: 4 IU, QD
     Route: 058
     Dates: start: 20000625
  3. HARNAL [Concomitant]
  4. ASPIRIN [Concomitant]
  5. BERIZYM [Concomitant]
  6. LENDORMIN [Concomitant]

REACTIONS (3)
  - ANTI-INSULIN ANTIBODY INCREASED [None]
  - DECREASED APPETITE [None]
  - HYPOGLYCAEMIA [None]
